FAERS Safety Report 15350897 (Version 1)
Quarter: 2018Q3

REPORT INFORMATION
  Report Type: Spontaneous
  Country: MX (occurrence: MX)
  Receive Date: 20180905
  Receipt Date: 20180905
  Transmission Date: 20181010
  Serious: Yes (Hospitalization, Other)
  Sender: FDA-Public Use
  Company Number: MX-IPCA LABORATORIES LIMITED-IPC-2018-MX-001841

PATIENT

DRUGS (7)
  1. AMIODARONE [Interacting]
     Active Substance: AMIODARONE
     Indication: ATRIAL FIBRILLATION
     Dosage: 300 MG, UNK
     Route: 042
  2. WARFARINE [Concomitant]
     Active Substance: WARFARIN
     Indication: PRODUCT USED FOR UNKNOWN INDICATION
     Dosage: 2.5 MG, QID
     Route: 065
  3. HYDROXYCHLOROQUINE [Suspect]
     Active Substance: HYDROXYCHLOROQUINE
     Indication: ATRIAL FIBRILLATION
     Dosage: 200 MG, QID
     Route: 065
  4. AMIODARONE [Interacting]
     Active Substance: AMIODARONE
     Dosage: 200 MG, QID
     Route: 065
  5. FUROSEMIDE. [Concomitant]
     Active Substance: FUROSEMIDE
     Indication: PRODUCT USED FOR UNKNOWN INDICATION
     Dosage: 20 MG, QID
     Route: 065
  6. HYDROXYCHLOROQUINE [Interacting]
     Active Substance: HYDROXYCHLOROQUINE
     Indication: CARDIAC FAILURE ACUTE
  7. AMIODARONE [Interacting]
     Active Substance: AMIODARONE
     Indication: CARDIAC FAILURE ACUTE
     Dosage: 900 MG, UNK
     Route: 042

REACTIONS (3)
  - Bradycardia [Recovered/Resolved]
  - Long QT syndrome [Recovered/Resolved]
  - Drug interaction [Unknown]
